FAERS Safety Report 23276342 (Version 7)
Quarter: 2025Q3

REPORT INFORMATION
  Report Type: Report from Study
  Country: US (occurrence: US)
  Receive Date: 20231208
  Receipt Date: 20250904
  Transmission Date: 20251021
  Serious: Yes (Hospitalization, Other)
  Sender: TAKEDA
  Company Number: US-TAKEDA-2023TUS117066

PATIENT
  Sex: Male

DRUGS (39)
  1. MARIBAVIR [Suspect]
     Active Substance: MARIBAVIR
     Indication: Cytomegalovirus infection
     Dosage: 400 MILLIGRAM, BID
     Dates: start: 20230913, end: 20240919
  2. MARIBAVIR [Suspect]
     Active Substance: MARIBAVIR
     Indication: Complications of transplanted kidney
     Dosage: 400 MILLIGRAM, BID
  3. NPH INSULIN [Concomitant]
     Active Substance: INSULIN BEEF
     Dosage: 10 INTERNATIONAL UNIT, QD
  4. CHOLECALCIFEROL [Concomitant]
     Active Substance: CHOLECALCIFEROL
     Dosage: 2000 INTERNATIONAL UNIT, QD
  5. INSULIN LISPRO [Concomitant]
     Active Substance: INSULIN LISPRO
     Dosage: UNK UNK, TID
  6. INSULIN LISPRO [Concomitant]
     Active Substance: INSULIN LISPRO
     Dosage: 3 INTERNATIONAL UNIT, QD
  7. MAGNESIUM OXIDE [Concomitant]
     Active Substance: MAGNESIUM OXIDE
     Dosage: 400 MILLIGRAM, BID
  8. TACROLIMUS [Concomitant]
     Active Substance: TACROLIMUS
     Dosage: 3 MILLIGRAM, QD
  9. TACROLIMUS [Concomitant]
     Active Substance: TACROLIMUS
  10. AMLODIPINE [Concomitant]
     Active Substance: AMLODIPINE BESYLATE
     Dosage: 10 MILLIGRAM, QD
  11. ASPIRIN [Concomitant]
     Active Substance: ASPIRIN
     Dosage: 81 MILLIGRAM, QD
  12. ATOVAQUONE [Concomitant]
     Active Substance: ATOVAQUONE
     Dosage: 1500 MILLIGRAM, QD
  13. DOXAZOSIN [Concomitant]
     Active Substance: DOXAZOSIN MESYLATE
     Dosage: 4 MILLIGRAM, QD
  14. FERROUS SULFATE [Concomitant]
     Active Substance: FERROUS SULFATE
     Dosage: 300 MILLIGRAM, QD
  15. FUROSEMIDE [Concomitant]
     Active Substance: FUROSEMIDE
     Dosage: 40 MILLIGRAM, QD
  16. HYDRALAZINE [Concomitant]
     Active Substance: HYDRALAZINE HYDROCHLORIDE
     Dosage: 50 MILLIGRAM, TID
  17. LINAGLIPTIN [Concomitant]
     Active Substance: LINAGLIPTIN
     Dosage: 5 MILLIGRAM, QD
  18. METOPROLOL TARTRATE [Concomitant]
     Active Substance: METOPROLOL TARTRATE
     Dosage: 25 MILLIGRAM, BID
  19. PANTOPRAZOLE [Concomitant]
     Active Substance: PANTOPRAZOLE
     Dosage: 40 MILLIGRAM, BID
  20. POLYETHYLENE GLYCOL [Concomitant]
     Active Substance: POLYETHYLENE GLYCOL
     Dosage: 17 GRAM, QD
  21. PREDNISONE [Concomitant]
     Active Substance: PREDNISONE
     Dosage: 10 MILLIGRAM, QD
  22. RAMELTEON [Concomitant]
     Active Substance: RAMELTEON
     Dosage: 8 MILLIGRAM, QD
  23. THIAMINE MONONITRATE [Concomitant]
     Active Substance: THIAMINE MONONITRATE
     Dosage: 100 MILLIGRAM, QD
  24. DEXTROSE [Concomitant]
     Active Substance: DEXTROSE MONOHYDRATE
  25. IPRATROPIUM [Concomitant]
     Active Substance: IPRATROPIUM
  26. Acetaminophen semo [Concomitant]
  27. ALBUTEROL [Concomitant]
     Active Substance: ALBUTEROL
  28. BENZONATATE [Concomitant]
     Active Substance: BENZONATATE
  29. CETIRIZINE [Concomitant]
     Active Substance: CETIRIZINE HYDROCHLORIDE
  30. GLUCAGON [Concomitant]
     Active Substance: GLUCAGON
  31. HYDROCODONE [Concomitant]
     Active Substance: HYDROCODONE
  32. LABETALOL [Concomitant]
     Active Substance: LABETALOL
  33. NALOXONE [Concomitant]
     Active Substance: NALOXONE
  34. ONDANSETRON [Concomitant]
     Active Substance: ONDANSETRON
  35. SENNA [Concomitant]
     Active Substance: SENNOSIDES
  36. SIMETHICONE (DIMETHICONE) [Concomitant]
     Active Substance: DIMETHICONE
  37. MAGNESIUM CHLORIDE [Concomitant]
     Active Substance: MAGNESIUM CHLORIDE
     Dosage: 128 MILLIGRAM, QD
  38. METOPROLOL SUCCINATE [Concomitant]
     Active Substance: METOPROLOL SUCCINATE
     Dosage: 50 MILLIGRAM, QD
  39. PANTOPRAZOLE SODIUM [Concomitant]
     Active Substance: PANTOPRAZOLE SODIUM

REACTIONS (6)
  - Respiratory failure [Unknown]
  - Pneumonia [Unknown]
  - Abdominal discomfort [Unknown]
  - Dysgeusia [Unknown]
  - Ageusia [Unknown]
  - Fatigue [Unknown]
